FAERS Safety Report 21223002 (Version 2)
Quarter: 2022Q3

REPORT INFORMATION
  Report Type: Report from Study
  Country: US (occurrence: US)
  Receive Date: 20220817
  Receipt Date: 20220824
  Transmission Date: 20221026
  Serious: Yes (Hospitalization, Other)
  Sender: FDA-Public Use
  Company Number: US-PFIZER INC-202200954531

PATIENT
  Age: 44 Year
  Sex: Male

DRUGS (4)
  1. BRAFTOVI [Suspect]
     Active Substance: ENCORAFENIB
     Dosage: 450 MG, DAILY
     Route: 048
  2. BRAFTOVI [Suspect]
     Active Substance: ENCORAFENIB
     Dosage: 75 MG, DAILY
     Route: 048
     Dates: start: 20220705, end: 20220804
  3. MEKTOVI [Suspect]
     Active Substance: BINIMETINIB
     Dosage: 45 MG, DAILY
     Route: 048
  4. MEKTOVI [Suspect]
     Active Substance: BINIMETINIB
     Dosage: 15 MG, 2X/DAY
     Route: 048
     Dates: start: 20220705, end: 20220804

REACTIONS (5)
  - Renal impairment [Unknown]
  - Hypothyroidism [Unknown]
  - Fatigue [Not Recovered/Not Resolved]
  - Decreased appetite [Not Recovered/Not Resolved]
  - Off label use [Unknown]

NARRATIVE: CASE EVENT DATE: 20220601
